FAERS Safety Report 9456331 (Version 1)
Quarter: 2013Q3

REPORT INFORMATION
  Report Type: Spontaneous
  Country: US (occurrence: None)
  Receive Date: 20130812
  Receipt Date: 20130812
  Transmission Date: 20140515
  Serious: No
  Sender: FDA-Public Use
  Company Number: None

PATIENT
  Age: 67 Year
  Sex: Male
  Weight: 81.65 kg

DRUGS (1)
  1. TIMOLOL [Suspect]
     Indication: GLAUCOMA
     Dosage: 1 DROP PER DAY ONCE DAILY INTO THE EYE

REACTIONS (4)
  - Blepharitis [None]
  - Eyelids pruritus [None]
  - Product contamination [None]
  - Eyelid irritation [None]
